FAERS Safety Report 5657483-9 (Version None)
Quarter: 2008Q1

REPORT INFORMATION
  Report Type: 
  Country: None (occurrence: None)
  Receive Date: 20080307
  Receipt Date: 20080307
  Transmission Date: 20080703
  Serious: No
  Sender: FDA-Public Use
  Company Number: None

PATIENT
  Age: 47 Year
  Sex: Female
  Weight: 104.3273 kg

DRUGS (1)
  1. MUCINEX [Suspect]

REACTIONS (3)
  - HEADACHE [None]
  - NO THERAPEUTIC RESPONSE [None]
  - PHOTOPSIA [None]
